FAERS Safety Report 17731783 (Version 1)
Quarter: 2020Q2

REPORT INFORMATION
  Report Type: Spontaneous
  Country: JP (occurrence: JP)
  Receive Date: 20200501
  Receipt Date: 20200501
  Transmission Date: 20200714
  Serious: Yes (Hospitalization)
  Sender: FDA-Public Use
  Company Number: JP-TEVA-2020-JP-1231132

PATIENT
  Age: 70 Year
  Sex: Female

DRUGS (3)
  1. TRIHEXYPHENIDYL [Suspect]
     Active Substance: TRIHEXYPHENIDYL
     Dosage: 12 MILLIGRAM DAILY;
     Route: 048
  2. TRIHEXYPHENIDYL [Suspect]
     Active Substance: TRIHEXYPHENIDYL
     Indication: TORTICOLLIS
     Dosage: INITIAL DOSAGE NOT STATED
     Route: 048
  3. TRIHEXYPHENIDYL [Suspect]
     Active Substance: TRIHEXYPHENIDYL
     Dosage: 24 MILLIGRAM DAILY;
     Route: 048

REACTIONS (2)
  - Chorea [Recovered/Resolved]
  - Drug ineffective [Unknown]
